FAERS Safety Report 5239591-X (Version None)
Quarter: 2007Q1

REPORT INFORMATION
  Report Type: 
  Country: None (occurrence: None)
  Receive Date: 20070216
  Receipt Date: 20070208
  Transmission Date: 20070707
  Serious: Yes (Death, Life-Threatening, Other)
  Sender: FDA-Public Use
  Company Number: HQWYE242209FEB07

PATIENT
  Age: 30 Year
  Sex: Male

DRUGS (2)
  1. MYLOTARG [Suspect]
     Indication: ACUTE MYELOID LEUKAEMIA
     Dosage: 15 MG DAILY
     Route: 041
     Dates: start: 20061228, end: 20061228
  2. MYLOTARG [Suspect]
     Dosage: 15 MG DAILY
     Route: 041
     Dates: start: 20070113, end: 20070113

REACTIONS (3)
  - CONDITION AGGRAVATED [None]
  - OBLITERATIVE BRONCHIOLITIS [None]
  - SEPSIS [None]
